FAERS Safety Report 4788514-6 (Version None)
Quarter: 2005Q4

REPORT INFORMATION
  Report Type: 
  Country: None (occurrence: None)
  Receive Date: 20051005
  Receipt Date: 20050625
  Transmission Date: 20060501
  Serious: Yes (Hospitalization, Other)
  Sender: FDA-Public Use
  Company Number: US-MERCK-0506USA03577

PATIENT
  Age: 61 Year
  Sex: Female
  Weight: 57 kg

DRUGS (9)
  1. VIOXX [Suspect]
     Indication: ARTHRALGIA
     Route: 048
     Dates: start: 20020101, end: 20040101
  2. VIOXX [Suspect]
     Route: 048
     Dates: start: 20020101, end: 20040101
  3. VIOXX [Suspect]
     Indication: RHEUMATOID ARTHRITIS
     Route: 048
     Dates: start: 20020101, end: 20040101
  4. VIOXX [Suspect]
     Route: 048
     Dates: start: 20020101, end: 20040101
  5. ZOCOR [Concomitant]
     Indication: BLOOD CHOLESTEROL INCREASED
     Route: 048
  6. GLUCOVANCE [Concomitant]
     Indication: DIABETES MELLITUS
     Route: 048
  7. GLUCOTROL XL [Concomitant]
     Indication: DIABETES MELLITUS
     Route: 048
  8. ROBAXIN [Concomitant]
     Indication: BACK PAIN
     Route: 065
  9. PRILOSEC [Concomitant]
     Route: 048

REACTIONS (3)
  - BENIGN BREAST NEOPLASM [None]
  - CEREBROVASCULAR ACCIDENT [None]
  - HYPERTENSION [None]
